FAERS Safety Report 12556860 (Version 1)
Quarter: 2016Q3

REPORT INFORMATION
  Report Type: Spontaneous
  Country: US (occurrence: US)
  Receive Date: 20160714
  Receipt Date: 20160714
  Transmission Date: 20161109
  Serious: No
  Sender: FDA-Public Use
  Company Number: US-SA-2016SA114121

PATIENT
  Sex: Male

DRUGS (7)
  1. TOUJEO [Concomitant]
     Active Substance: INSULIN GLARGINE
     Dosage: DOSE:15 UNIT(S)
     Dates: start: 201604
  2. AMARYL [Suspect]
     Active Substance: GLIMEPIRIDE
     Route: 065
  3. VICTOZA [Concomitant]
     Active Substance: LIRAGLUTIDE
  4. SOLOSTAR [Concomitant]
     Active Substance: DEVICE
     Dosage: DOSE:20 UNIT(S)
  5. METFORMIN [Concomitant]
     Active Substance: METFORMIN HYDROCHLORIDE
  6. SOLOSTAR [Concomitant]
     Active Substance: DEVICE
     Dosage: DOSE:15 UNIT(S)
     Dates: start: 201604
  7. TOUJEO [Concomitant]
     Active Substance: INSULIN GLARGINE
     Dosage: DOSE:20 UNIT(S)

REACTIONS (4)
  - Glycosylated haemoglobin increased [Unknown]
  - Gastric disorder [Unknown]
  - Neuropathy peripheral [Unknown]
  - Blood glucose increased [Unknown]

NARRATIVE: CASE EVENT DATE: 201605
